FAERS Safety Report 9562217 (Version 1)
Quarter: 2013Q3

REPORT INFORMATION
  Report Type: Report from Study
  Country: US (occurrence: US)
  Receive Date: 20130927
  Receipt Date: 20130927
  Transmission Date: 20140515
  Serious: Yes (Hospitalization)
  Sender: FDA-Public Use
  Company Number: PHEH2013US019995

PATIENT
  Age: 70 Year
  Sex: Female

DRUGS (7)
  1. SANDOSTATIN [Suspect]
     Indication: CARCINOID SYNDROME
     Dosage: UNK UKN, UNK
  2. SANDOSTATIN LAR DEPOT [Suspect]
     Indication: CARCINOID SYNDROME
     Dosage: 30 UG, UNK
  3. SANDOSTATIN LAR DEPOT [Suspect]
     Dosage: 40 UG, ONCE A MONTH
     Dates: start: 201210
  4. ATENOL [Concomitant]
     Dosage: 25 MG, TWICE AM AND TWICE  PM
  5. PREVACID [Concomitant]
     Dosage: 30 MG, TWICE DAILY
  6. ATIVAN [Concomitant]
     Dosage: 1 MG, TID
  7. TYLENOL [Concomitant]
     Dosage: UNK UKN, PRN

REACTIONS (4)
  - Atrial fibrillation [Not Recovered/Not Resolved]
  - Glossodynia [Not Recovered/Not Resolved]
  - Diarrhoea [Not Recovered/Not Resolved]
  - Dyspepsia [Not Recovered/Not Resolved]
